FAERS Safety Report 7600769-9 (Version None)
Quarter: 2011Q2

REPORT INFORMATION
  Report Type: 
  Country: None (occurrence: None)
  Receive Date: 20110627
  Receipt Date: 20110127
  Transmission Date: 20111010
  Serious: Yes (Disabling, Other)
  Sender: FDA-Public Use
  Company Number: FK201100088

PATIENT
  Sex: Male

DRUGS (2)
  1. SENSORCAINE [Suspect]
     Indication: MUSCULOSKELETAL PAIN
     Dosage: CONTINUOUS VIA PUMP LEFT SHOULDER, INTRA-ARTICULAR
     Route: 014
     Dates: start: 20080213
  2. ACCUFUSER PAIN PUMP [Suspect]
     Indication: MUSCULOSKELETAL PAIN
     Dosage: LEFT SHOULDER
     Dates: start: 20080213

REACTIONS (2)
  - MUSCULOSKELETAL PAIN [None]
  - CHONDROLYSIS [None]
